FAERS Safety Report 18035581 (Version 1)
Quarter: 2020Q3

REPORT INFORMATION
  Report Type: Spontaneous
  Country: US (occurrence: US)
  Receive Date: 20200715
  Receipt Date: 20200715
  Transmission Date: 20201103
  Serious: Yes (Death, Hospitalization)
  Sender: FDA-Public Use
  Company Number: None

PATIENT
  Age: 69 Year
  Sex: Male
  Weight: 79.56 kg

DRUGS (1)
  1. LENALIDOMIDE (CC?5013) [Suspect]
     Active Substance: LENALIDOMIDE
     Dates: end: 20200621

REACTIONS (6)
  - Pyrexia [None]
  - Decreased appetite [None]
  - COVID-19 [None]
  - Atrial fibrillation [None]
  - Transfusion [None]
  - Rash [None]

NARRATIVE: CASE EVENT DATE: 20200706
